FAERS Safety Report 24883806 (Version 5)
Quarter: 2025Q4

REPORT INFORMATION
  Report Type: Spontaneous
  Country: EU (occurrence: EU)
  Receive Date: 20250124
  Receipt Date: 20251013
  Transmission Date: 20260118
  Serious: Yes (Death, Hospitalization, Other)
  Sender: SANDOZ
  Company Number: EU-PFIZER INC-PV202500007081

PATIENT
  Age: 67 Year
  Sex: Male
  Weight: 63 kg

DRUGS (23)
  1. CARBOPLATIN [Suspect]
     Active Substance: CARBOPLATIN
     Dosage: 520 MILLIGRAM, CYCLE
     Route: 065
  2. CARBOPLATIN [Suspect]
     Active Substance: CARBOPLATIN
     Indication: Lung cancer metastatic
     Dosage: 650 MILLIGRAM, CYCLE
     Route: 065
  3. METHYLPREDNISOLONE SODIUM SUCCINATE [Suspect]
     Active Substance: METHYLPREDNISOLONE SODIUM SUCCINATE
     Indication: Acute hepatic failure
     Dosage: 120 MILLIGRAM,QD,(120 MG, DAILY)
     Route: 065
  4. METHYLPREDNISOLONE SODIUM SUCCINATE [Suspect]
     Active Substance: METHYLPREDNISOLONE SODIUM SUCCINATE
     Indication: Drug-induced liver injury
  5. MYCOPHENOLATE MOFETIL [Suspect]
     Active Substance: MYCOPHENOLATE MOFETIL
     Indication: Drug-induced liver injury
     Dosage: 2 GRAM, QD,(1 G, 2X/DAY)
     Route: 065
  6. MYCOPHENOLATE MOFETIL [Suspect]
     Active Substance: MYCOPHENOLATE MOFETIL
     Indication: Acute hepatic failure
  7. MYCOPHENOLATE MOFETIL [Suspect]
     Active Substance: MYCOPHENOLATE MOFETIL
     Indication: Hepatic failure
  8. PEMBROLIZUMAB [Suspect]
     Active Substance: PEMBROLIZUMAB
     Indication: Lung cancer metastatic
     Dosage: 139 MILLIGRAM, CYCLE
     Route: 065
  9. PEMBROLIZUMAB [Suspect]
     Active Substance: PEMBROLIZUMAB
     Dosage: 675 MILLIGRAM, CYCLE
     Route: 065
  10. PEMETREXED [Suspect]
     Active Substance: PEMETREXED
     Dosage: 675 MILLIGRAM, CYCLE
     Route: 065
  11. PEMETREXED [Suspect]
     Active Substance: PEMETREXED
     Indication: Lung cancer metastatic
     Dosage: 900 MILLIGRAM, CYCLE
     Route: 065
  12. PREDNISOLONE [Suspect]
     Active Substance: PREDNISOLONE
     Indication: Drug-induced liver injury
     Dosage: 50 MILLIGRAM, QD,(50 MG, DAILY)
     Route: 065
  13. PREDNISOLONE [Suspect]
     Active Substance: PREDNISOLONE
     Indication: Acute hepatic failure
  14. PREDNISOLONE [Suspect]
     Active Substance: PREDNISOLONE
     Indication: Hepatic failure
  15. TACROLIMUS [Suspect]
     Active Substance: TACROLIMUS
     Indication: Drug-induced liver injury
     Dosage: 4 MILLIGRAM, QD,(2 MG, 2X/DAY)
     Route: 065
  16. TACROLIMUS [Suspect]
     Active Substance: TACROLIMUS
     Indication: Acute hepatic failure
  17. TACROLIMUS [Suspect]
     Active Substance: TACROLIMUS
     Indication: Drug-induced liver injury
  18. TACROLIMUS [Suspect]
     Active Substance: TACROLIMUS
     Indication: Hepatic failure
  19. TACROLIMUS [Suspect]
     Active Substance: TACROLIMUS
     Indication: Hepatitis
  20. METHYLPREDNISOLONE [Concomitant]
     Active Substance: METHYLPREDNISOLONE
     Indication: Hepatitis
     Dosage: 120 MG
     Route: 065
  21. MYCOPHENOLATE MOFETIL [Concomitant]
     Active Substance: MYCOPHENOLATE MOFETIL
     Indication: Hepatitis
     Dosage: 1 G 0.5 D
     Route: 065
  22. PREDNISOLONE [Concomitant]
     Active Substance: PREDNISOLONE
     Indication: Hepatitis
     Dosage: 50 MG, QD
     Route: 065
  23. TACROLIMUS [Concomitant]
     Active Substance: TACROLIMUS
     Indication: Hepatitis
     Dosage: 2 MG 0.5 D
     Route: 065

REACTIONS (11)
  - Drug-induced liver injury [Fatal]
  - Acute hepatic failure [Fatal]
  - Acute hepatic failure [Fatal]
  - Drug ineffective for unapproved indication [Fatal]
  - Drug ineffective [Fatal]
  - Hepatitis [Fatal]
  - Hepatic encephalopathy [Fatal]
  - Coma [Fatal]
  - Off label use [Fatal]
  - Product use issue [Unknown]
  - Incorrect dose administered [Unknown]
